FAERS Safety Report 9389633 (Version 1)
Quarter: 2013Q3

REPORT INFORMATION
  Report Type: Spontaneous
  Country: US (occurrence: US)
  Receive Date: 20130708
  Receipt Date: 20130708
  Transmission Date: 20140515
  Serious: No
  Sender: FDA-Public Use
  Company Number: US-AMGEN-USASP2013039520

PATIENT
  Age: 50 Year
  Sex: Female

DRUGS (2)
  1. ENBREL [Suspect]
     Indication: PSORIASIS
     Dosage: 50 MG, QWK
     Route: 065
     Dates: start: 201211, end: 20130525
  2. ENBREL [Suspect]
     Indication: PSORIATIC ARTHROPATHY

REACTIONS (14)
  - Drug effect incomplete [Not Recovered/Not Resolved]
  - Blister [Not Recovered/Not Resolved]
  - Acne [Not Recovered/Not Resolved]
  - Pain [Not Recovered/Not Resolved]
  - Nodule [Not Recovered/Not Resolved]
  - Formication [Not Recovered/Not Resolved]
  - Arthralgia [Recovered/Resolved]
  - Asthma [Unknown]
  - Joint swelling [Recovered/Resolved]
  - Upper respiratory tract infection [Recovered/Resolved]
  - Infection [Not Recovered/Not Resolved]
  - Psoriasis [Not Recovered/Not Resolved]
  - Lymphadenopathy [Not Recovered/Not Resolved]
  - Herpes zoster [Unknown]
